FAERS Safety Report 9845949 (Version 1)
Quarter: 2014Q1

REPORT INFORMATION
  Report Type: Spontaneous
  Country: US (occurrence: US)
  Receive Date: 20140127
  Receipt Date: 20140127
  Transmission Date: 20141002
  Serious: Yes (Other)
  Sender: FDA-Public Use
  Company Number: US-AMGEN-USASP2014004582

PATIENT
  Age: 80 Year
  Sex: Female

DRUGS (7)
  1. PROLIA [Suspect]
     Indication: OSTEOPOROSIS
     Dosage: UNK
     Route: 065
     Dates: start: 20130817
  2. NEXIUM                             /01479302/ [Concomitant]
  3. PREMARIN [Concomitant]
  4. FUROSEMIDE [Concomitant]
  5. POTASSIUM [Concomitant]
  6. COQ10                              /00517201/ [Concomitant]
  7. FISH OIL [Concomitant]

REACTIONS (8)
  - Impaired healing [Unknown]
  - Eczema [Unknown]
  - Rash [Unknown]
  - Sensitivity of teeth [Unknown]
  - Dysphagia [Unknown]
  - Sinus disorder [Unknown]
  - Osteopenia [Unknown]
  - Tooth disorder [Unknown]
